FAERS Safety Report 8307600 (Version 3)
Quarter: 2015Q4

REPORT INFORMATION
  Report Type: Report from Study
  Country: FR (occurrence: FR)
  Receive Date: 20111222
  Receipt Date: 20151105
  Transmission Date: 20160305
  Serious: Yes (Hospitalization, Other)
  Sender: FDA-Public Use
  Company Number: FR-ROCHE-1023037

PATIENT
  Age: 44 Year
  Sex: Female

DRUGS (30)
  1. TOCILIZUMAB [Suspect]
     Active Substance: TOCILIZUMAB
     Indication: PRODUCT USED FOR UNKNOWN INDICATION
     Dosage: LAST DOSE RPIOR TO SAE: 20/JAN/2011
     Route: 042
     Dates: start: 20100929, end: 20110120
  2. METHYLPREDNISONE (UNK INGREDIENTS) [Concomitant]
     Route: 065
  3. PANTOPRAZOLE [Concomitant]
     Active Substance: PANTOPRAZOLE SODIUM
     Route: 065
  4. METHOTREXATE [Concomitant]
     Active Substance: METHOTREXATE
     Route: 065
  5. METHOTREXATE [Concomitant]
     Active Substance: METHOTREXATE
     Route: 065
     Dates: start: 20120529
  6. METHYLPREDNISONE (UNK INGREDIENTS) [Concomitant]
     Route: 065
     Dates: start: 20111006
  7. METHYLPREDNISONE (UNK INGREDIENTS) [Concomitant]
     Route: 065
     Dates: start: 20140327
  8. METHOTREXATE [Concomitant]
     Active Substance: METHOTREXATE
     Route: 065
     Dates: start: 20140901
  9. LEVOTHYROX [Concomitant]
     Active Substance: LEVOTHYROXINE
     Route: 065
  10. METHOTREXATE [Concomitant]
     Active Substance: METHOTREXATE
     Route: 065
     Dates: start: 20150223
  11. ABATACEPT [Concomitant]
     Active Substance: ABATACEPT
     Route: 065
     Dates: start: 20130425
  12. ABATACEPT [Concomitant]
     Active Substance: ABATACEPT
     Route: 065
     Dates: start: 20150223
  13. CORTANCYL [Concomitant]
     Active Substance: PREDNISONE
     Route: 065
     Dates: start: 20121015
  14. METHYLPREDNISONE (UNK INGREDIENTS) [Concomitant]
     Route: 065
     Dates: start: 20140901
  15. METHOTREXATE [Concomitant]
     Active Substance: METHOTREXATE
     Route: 065
     Dates: start: 20121015
  16. METHOTREXATE [Concomitant]
     Active Substance: METHOTREXATE
     Route: 065
     Dates: start: 20130425
  17. METHOTREXATE [Concomitant]
     Active Substance: METHOTREXATE
     Route: 065
     Dates: start: 20140327
  18. ABATACEPT [Concomitant]
     Active Substance: ABATACEPT
     Route: 065
     Dates: start: 20140327
  19. METHYLPREDNISONE (UNK INGREDIENTS) [Concomitant]
     Route: 065
     Dates: start: 20130911
  20. METHOTREXATE [Concomitant]
     Active Substance: METHOTREXATE
     Route: 065
     Dates: start: 20130911
  21. ABATACEPT [Concomitant]
     Active Substance: ABATACEPT
     Route: 065
     Dates: start: 20111006
  22. CORTANCYL [Concomitant]
     Active Substance: PREDNISONE
     Route: 065
     Dates: start: 20130425
  23. METHOTREXATE [Concomitant]
     Active Substance: METHOTREXATE
     Route: 065
     Dates: start: 20111006
  24. ABATACEPT [Concomitant]
     Active Substance: ABATACEPT
     Route: 065
     Dates: start: 20120529
  25. ABATACEPT [Concomitant]
     Active Substance: ABATACEPT
     Route: 065
     Dates: start: 20121015
  26. METHYLPREDNISONE (UNK INGREDIENTS) [Concomitant]
     Route: 065
     Dates: start: 20120529
  27. KETOPROFENE (FRANCE) [Concomitant]
     Route: 065
  28. ABATACEPT [Concomitant]
     Active Substance: ABATACEPT
     Route: 065
     Dates: start: 20140901
  29. ALENDRONATE [Concomitant]
     Active Substance: ALENDRONATE SODIUM
     Route: 065
  30. ABATACEPT [Concomitant]
     Active Substance: ABATACEPT
     Route: 065
     Dates: start: 20130911

REACTIONS (8)
  - Myelocytosis [Not Recovered/Not Resolved]
  - Pancreatitis [Recovered/Resolved]
  - Leukocytosis [Not Recovered/Not Resolved]
  - Bronchitis [Recovered/Resolved]
  - Skin necrosis [Unknown]
  - Skin ulcer [Recovered/Resolved]
  - Cholecystitis [Recovered/Resolved]
  - Angiodermatitis [Unknown]

NARRATIVE: CASE EVENT DATE: 20110405
